FAERS Safety Report 15353016 (Version 2)
Quarter: 2018Q3

REPORT INFORMATION
  Report Type: Report from Study
  Country: US (occurrence: US)
  Receive Date: 20180905
  Receipt Date: 20180912
  Transmission Date: 20181010
  Serious: Yes (Hospitalization, Other)
  Sender: FDA-Public Use
  Company Number: US-BAYER-2018-161226

PATIENT
  Age: 66 Year
  Sex: Male

DRUGS (2)
  1. ORAL REHYDRATION SALT [Concomitant]
  2. NEXAVAR [Suspect]
     Active Substance: SORAFENIB
     Indication: HEPATOCELLULAR CARCINOMA
     Dosage: 200 MG, BID
     Route: 048
     Dates: start: 20180814, end: 20180821

REACTIONS (13)
  - Confusional state [Recovering/Resolving]
  - Vomiting [Recovering/Resolving]
  - Asthenia [Recovering/Resolving]
  - Off label use [None]
  - Feeding disorder [Recovering/Resolving]
  - Motor dysfunction [Recovering/Resolving]
  - Abdominal pain upper [Not Recovered/Not Resolved]
  - Tachycardia [Recovering/Resolving]
  - Back pain [Recovering/Resolving]
  - Hypertension [Recovering/Resolving]
  - Arthralgia [Not Recovered/Not Resolved]
  - Contusion [Recovering/Resolving]
  - Nausea [Recovering/Resolving]

NARRATIVE: CASE EVENT DATE: 201808
